FAERS Safety Report 10817874 (Version 2)
Quarter: 2015Q1

REPORT INFORMATION
  Report Type: Spontaneous
  Country: JP (occurrence: None)
  Receive Date: 20150213
  Receipt Date: 20150218
  Transmission Date: 20150721
  Serious: Yes (Death, Hospitalization, Other)
  Sender: FDA-Public Use
  Company Number: ADR-2015-00298

PATIENT
  Age: 32 Year
  Sex: Male

DRUGS (1)
  1. GABALON INTRATHECAL [Suspect]
     Active Substance: BACLOFEN
     Indication: HEAD INJURY
     Dates: start: 20140124, end: 20150128

REACTIONS (3)
  - Shunt occlusion [None]
  - Intracranial pressure increased [None]
  - Refusal of treatment by relative [None]

NARRATIVE: CASE EVENT DATE: 20150128
